FAERS Safety Report 18000972 (Version 1)
Quarter: 2020Q3

REPORT INFORMATION
  Report Type: Report from Study
  Country: ES (occurrence: ES)
  Receive Date: 20200709
  Receipt Date: 20200709
  Transmission Date: 20201103
  Serious: Yes (Life-Threatening, Hospitalization)
  Sender: FDA-Public Use
  Company Number: ES-MYLANLABS-2020M1060868

PATIENT
  Age: 75 Year
  Sex: Male

DRUGS (10)
  1. AZACITIDINE. [Suspect]
     Active Substance: AZACITIDINE
     Indication: ATRIAL FIBRILLATION
     Dosage: 945 MILLIGRAM, Q28D
     Route: 058
     Dates: start: 20190225, end: 20190730
  2. VALSARTAN. [Concomitant]
     Active Substance: VALSARTAN
     Indication: HYPERTENSION
     Dosage: 160 MILLIGRAM, QD (160 MILLIGRAM)
     Route: 048
     Dates: end: 20190331
  3. SULODEXIDE [Concomitant]
     Active Substance: SULODEXIDE
     Indication: PERIPHERAL ARTERIAL OCCLUSIVE DISEASE
     Dosage: 15 MILLIGRAM, Q8H (45 MILLIGRAM)
     Route: 048
     Dates: end: 20190331
  4. AZACITIDINE. [Suspect]
     Active Substance: AZACITIDINE
     Dosage: 945 MILLIGRAM, Q28D
     Route: 058
     Dates: start: 20190325
  5. BETAHISTINA                        /00141801/ [Concomitant]
     Indication: VERTIGO
     Dosage: 16 MILLIGRAM, Q8H (48 MILLIGRAM)
     Route: 048
     Dates: end: 20190331
  6. CLEXANE [Concomitant]
     Active Substance: ENOXAPARIN SODIUM
     Indication: ATRIAL FIBRILLATION
     Dosage: 80 MILLIGRAM, QD (80 MILLIGRAM)
     Route: 058
     Dates: start: 20181122, end: 20190331
  7. AZACITIDINE. [Suspect]
     Active Substance: AZACITIDINE
     Dosage: 945 MILLIGRAM, 28D CYCLE
     Route: 041
     Dates: start: 20191217
  8. AZACITIDINE. [Suspect]
     Active Substance: AZACITIDINE
     Indication: ACUTE MYELOID LEUKAEMIA
     Dosage: 80 MILLIGRAM, QD (80 MILLIGRAM)
     Route: 058
     Dates: start: 20181122, end: 20190331
  9. AZACITIDINE. [Suspect]
     Active Substance: AZACITIDINE
     Dosage: 945 MILLIGRAM, 28D CYCLE
     Route: 041
     Dates: start: 20181217, end: 20190224
  10. NEBIVOLOL. [Concomitant]
     Active Substance: NEBIVOLOL
     Indication: HYPERTENSION
     Dosage: 5 MILLIGRAM, QD (5 MILLIGRAM)
     Route: 048
     Dates: end: 20190331

REACTIONS (3)
  - Subdural haematoma [Recovered/Resolved]
  - Hypocalcaemia [Recovered/Resolved]
  - Cellulitis [Recovered/Resolved]

NARRATIVE: CASE EVENT DATE: 20190219
